FAERS Safety Report 15454462 (Version 1)
Quarter: 2018Q3

REPORT INFORMATION
  Report Type: Spontaneous
  Country: US (occurrence: US)
  Receive Date: 20180927
  Receipt Date: 20180927
  Transmission Date: 20181010
  Serious: Yes (Hospitalization)
  Sender: FDA-Public Use
  Company Number: None

PATIENT
  Age: 39 Year
  Sex: Male
  Weight: 103.42 kg

DRUGS (2)
  1. TEMOZOLOMIDE. [Suspect]
     Active Substance: TEMOZOLOMIDE
  2. MANOLIPOSOMAL IRINOTECAN [Suspect]
     Active Substance: IRINOTECAN
     Dosage: ?          OTHER DOSE:50/118MG/M2;?
     Route: 042

REACTIONS (2)
  - Disease progression [None]
  - Skin infection [None]

NARRATIVE: CASE EVENT DATE: 20180919
